FAERS Safety Report 5119641-1 (Version None)
Quarter: 2006Q3

REPORT INFORMATION
  Report Type: 
  Country: None (occurrence: None)
  Receive Date: 20060929
  Receipt Date: 20060919
  Transmission Date: 20061208
  Serious: Yes (Other)
  Sender: FDA-Public Use
  Company Number: 2006112914

PATIENT

DRUGS (1)
  1. DILANTIN [Suspect]
     Dosage: 300 MG

REACTIONS (1)
  - CONVULSION [None]
